FAERS Safety Report 24383262 (Version 2)
Quarter: 2024Q4

REPORT INFORMATION
  Report Type: Spontaneous
  Country: US (occurrence: US)
  Receive Date: 20241001
  Receipt Date: 20241010
  Transmission Date: 20250114
  Serious: Yes (Other)
  Sender: AMGEN
  Company Number: US-AMGEN-USASP2024191428

PATIENT
  Age: 58 Year
  Sex: Male
  Weight: 73 kg

DRUGS (24)
  1. PREDNISONE [Suspect]
     Active Substance: PREDNISONE
     Indication: Product used for unknown indication
     Dosage: UNK
     Route: 065
  2. RITUXAN [Concomitant]
     Active Substance: RITUXIMAB
     Dosage: 1 GRAM, DAY 0. 14 (FIRST ROUND)
     Route: 042
     Dates: start: 202112
  3. RITUXAN [Concomitant]
     Active Substance: RITUXIMAB
     Dosage: 1 GRAM, DAY 0. 14 (SECOND ROUND)
     Route: 042
     Dates: start: 202104
  4. RITUXAN [Concomitant]
     Active Substance: RITUXIMAB
     Dosage: UNK (THIRD ROUND)
     Dates: start: 20220624
  5. RITUXAN [Concomitant]
     Active Substance: RITUXIMAB
     Dosage: UNK (THIRD ROUND)
     Dates: start: 20220708
  6. RITUXAN [Concomitant]
     Active Substance: RITUXIMAB
     Dosage: UNK (FOURTH ROUND)
     Dates: start: 20230413
  7. RITUXAN [Concomitant]
     Active Substance: RITUXIMAB
     Dosage: UNK (FOURTH ROUND)
     Dates: start: 20230427
  8. RITUXAN [Concomitant]
     Active Substance: RITUXIMAB
     Dosage: UNK (FIFTH ROUND)
     Dates: start: 20230817
  9. RITUXAN [Concomitant]
     Active Substance: RITUXIMAB
     Dosage: UNK (FIFTH ROUND)
     Dates: start: 20230831
  10. RITUXAN [Concomitant]
     Active Substance: RITUXIMAB
     Dosage: UNK (SIXTH ROUND)
     Dates: start: 20231212
  11. RITUXAN [Concomitant]
     Active Substance: RITUXIMAB
     Dosage: UNK (SIXTH ROUND)
     Dates: start: 20231228
  12. RITUXAN [Concomitant]
     Active Substance: RITUXIMAB
     Dosage: UNK (SEVENTH ROUND)
     Dates: start: 20240425
  13. RITUXAN [Concomitant]
     Active Substance: RITUXIMAB
     Dosage: UNK (SEVENTH ROUND)
     Dates: start: 20240509
  14. AZATHIOPRINE [Concomitant]
     Active Substance: AZATHIOPRINE
     Dosage: 150 MILLIGRAM, QD
     Dates: start: 20221102, end: 202303
  15. CELLCEPT [Concomitant]
     Active Substance: MYCOPHENOLATE MOFETIL
     Dosage: 1 GRAM, BID
     Dates: start: 20220512, end: 20221102
  16. CELLCEPT [Concomitant]
     Active Substance: MYCOPHENOLATE MOFETIL
     Dosage: 1 GRAM, BID
     Dates: start: 202306, end: 20230809
  17. RINVOQ [Concomitant]
     Active Substance: UPADACITINIB
     Dosage: 15 MILLIGRAM, QD
     Route: 048
  18. SHINGRIX [Concomitant]
     Active Substance: RECOMBINANT VARICELLA ZOSTER VIRUS (VZV) GLYCOPROTEIN E
     Dosage: UNK
     Dates: start: 20210625
  19. SHINGRIX [Concomitant]
     Active Substance: RECOMBINANT VARICELLA ZOSTER VIRUS (VZV) GLYCOPROTEIN E
     Dosage: UNK
     Dates: start: 20191209
  20. JANSSEN COVID-19 VACCINE [Concomitant]
     Active Substance: AD26.COV2.S
     Dosage: UNK
     Dates: start: 20210329
  21. MODERNA COVID-19 VACCINE [Concomitant]
     Active Substance: ELASOMERAN
     Dosage: UNK
     Dates: start: 20211109
  22. MODERNA COVID-19 VACCINE [Concomitant]
     Active Substance: ELASOMERAN
     Dosage: UNK
     Dates: start: 20230721
  23. EVUSHELD [Concomitant]
     Active Substance: CILGAVIMAB\TIXAGEVIMAB
     Dosage: UNK
     Dates: start: 20220513
  24. EVUSHELD [Concomitant]
     Active Substance: CILGAVIMAB\TIXAGEVIMAB
     Dosage: UNK
     Dates: start: 20220513, end: 20221111

REACTIONS (15)
  - Cholangitis sclerosing [Unknown]
  - Treatment failure [Unknown]
  - Viral infection [Unknown]
  - Burning sensation [Unknown]
  - Arthralgia [Unknown]
  - Joint swelling [Unknown]
  - Musculoskeletal stiffness [Unknown]
  - High density lipoprotein abnormal [Unknown]
  - Low density lipoprotein abnormal [Unknown]
  - Haemoglobin abnormal [Unknown]
  - Heart rate abnormal [Unknown]
  - Headache [Recovered/Resolved]
  - Eye pain [Recovered/Resolved]
  - Pyrexia [Recovered/Resolved]
  - Hyperhidrosis [Recovered/Resolved]

NARRATIVE: CASE EVENT DATE: 20240321
